FAERS Safety Report 7828367-2 (Version None)
Quarter: 2011Q4

REPORT INFORMATION
  Report Type: 
  Country: None (occurrence: None)
  Receive Date: 20111020
  Receipt Date: 20111017
  Transmission Date: 20120403
  Serious: No
  Sender: FDA-Public Use
  Company Number: US-PFIZER INC-2011248324

PATIENT
  Sex: Female
  Weight: 54.875 kg

DRUGS (3)
  1. HYDROMORPHONE [Concomitant]
     Indication: PAIN
     Dosage: 4 MG, 3X/DAY
  2. TRAMADOL [Concomitant]
     Indication: PAIN
     Dosage: 50 MG, 3X/DAY
  3. TOVIAZ [Suspect]
     Indication: BLADDER DISORDER
     Dosage: 8 MG, UNK
     Dates: start: 20111015, end: 20111015

REACTIONS (2)
  - SOMNOLENCE [None]
  - VOMITING [None]
